FAERS Safety Report 15985233 (Version 1)
Quarter: 2019Q1

REPORT INFORMATION
  Report Type: Spontaneous
  Country: US (occurrence: US)
  Receive Date: 20190220
  Receipt Date: 20190220
  Transmission Date: 20190418
  Serious: No
  Sender: FDA-Public Use
  Company Number: US-BAYER-2019-030429

PATIENT
  Age: 71 Year
  Sex: Female
  Weight: 78.93 kg

DRUGS (7)
  1. IBRANCE [Concomitant]
     Active Substance: PALBOCICLIB
     Dosage: 100 UNK
     Dates: start: 201801, end: 201802
  2. TRAZODONE [Concomitant]
     Active Substance: TRAZODONE HYDROCHLORIDE
     Indication: SLEEP DISORDER
     Dosage: 100 MG
  3. XGEVA [Concomitant]
     Active Substance: DENOSUMAB
     Dosage: INJECTION ONCE A MONTH
  4. IBRANCE [Concomitant]
     Active Substance: PALBOCICLIB
     Dosage: 125 UNK
     Dates: start: 201711, end: 201712
  5. IBRANCE [Concomitant]
     Active Substance: PALBOCICLIB
     Dosage: 75 MG
     Dates: start: 20180302
  6. CIPRO [Suspect]
     Active Substance: CIPROFLOXACIN HYDROCHLORIDE
     Dosage: 500 MG, BID
     Dates: start: 20180312
  7. FASLODEX [Concomitant]
     Active Substance: FULVESTRANT
     Dosage: 500MG INJECTIONS ONCE A MONTH

REACTIONS (2)
  - Dysuria [Not Recovered/Not Resolved]
  - Polyuria [Not Recovered/Not Resolved]

NARRATIVE: CASE EVENT DATE: 20180313
